FAERS Safety Report 16596062 (Version 2)
Quarter: 2019Q3

REPORT INFORMATION
  Report Type: Spontaneous
  Country: FR (occurrence: FR)
  Receive Date: 20190719
  Receipt Date: 20190801
  Transmission Date: 20191004
  Serious: Yes (Hospitalization, Other)
  Sender: FDA-Public Use
  Company Number: FR-AUROBINDO-AUR-APL-2019-040230

PATIENT

DRUGS (9)
  1. ATORVASTATIN ARROW GENERIQUES FILM-COATED TABLETS 40MG [Suspect]
     Active Substance: ATORVASTATIN
     Indication: HYPERCHOLESTEROLAEMIA
     Dosage: 40 MILLIGRAM, ONCE A DAY,0-0-1
     Route: 048
     Dates: start: 20190522
  2. EXJADE [Suspect]
     Active Substance: DEFERASIROX
     Indication: IRON OVERLOAD
     Dosage: 360 MILLIGRAM, ONCE A DAY,1-0-1
     Route: 048
     Dates: end: 20190525
  3. VALACYCLOVIR [Suspect]
     Active Substance: VALACYCLOVIR HYDROCHLORIDE
     Indication: ANTIVIRAL TREATMENT
     Dosage: 1000 MILLIGRAM, ONCE A DAY,1-0-1
     Route: 048
     Dates: start: 20190523
  4. CRESTOR [Concomitant]
     Active Substance: ROSUVASTATIN CALCIUM
     Indication: HYPERCHOLESTEROLAEMIA
     Dosage: 5 MILLIGRAM, ONCE A DAY
     Route: 048
  5. EXJADE [Suspect]
     Active Substance: DEFERASIROX
     Dosage: 360 MILLIGRAM, ONCE A DAY,1-0-1
     Route: 048
     Dates: start: 20190606
  6. NOXAFIL [Suspect]
     Active Substance: POSACONAZOLE
     Indication: FUNGAL INFECTION
     Dosage: 300 MILLIGRAM, ONCE A DAY,3-0-0
     Route: 048
     Dates: start: 20190528
  7. PIPERACILLINE / TAZOBACTAM MYLAN [Suspect]
     Active Substance: PIPERACILLIN SODIUM\TAZOBACTAM SODIUM
     Indication: INFECTION
     Dosage: 4 DOSAGE FORM, ONCE A DAY
     Route: 042
     Dates: start: 20190526, end: 20190621
  8. VYXEOS [Suspect]
     Active Substance: CYTARABINE\DAUNORUBICIN
     Indication: ACUTE MYELOID LEUKAEMIA
     Dosage: 1 DOSAGE FORM, 1 CYCLE,CYCLICAL,86/195 MG PERF FROM 90MIN TO D1, D3, D5
     Route: 042
     Dates: start: 20190524
  9. FLUCONAZOLE ARROW? 200 MG CAPSULE [Suspect]
     Active Substance: FLUCONAZOLE
     Indication: FUNGAL INFECTION
     Dosage: 400 MILLIGRAM, ONCE A DAY,2-0-0
     Route: 048
     Dates: start: 20190524

REACTIONS (3)
  - Hepatocellular injury [Recovering/Resolving]
  - Condition aggravated [Recovering/Resolving]
  - Cholestasis [Recovering/Resolving]

NARRATIVE: CASE EVENT DATE: 20190530
